FAERS Safety Report 8308629-5 (Version None)
Quarter: 2012Q2

REPORT INFORMATION
  Report Type: 
  Country: None (occurrence: None)
  Receive Date: 20120424
  Receipt Date: 20120416
  Transmission Date: 20120825
  Serious: Yes (Hospitalization, Other)
  Sender: FDA-Public Use
  Company Number: US-BAYER-2012-034921

PATIENT
  Age: 46 Year
  Sex: Female
  Weight: 101.13 kg

DRUGS (11)
  1. YASMIN [Suspect]
     Indication: CONTRACEPTION
     Dosage: UNK
     Dates: start: 20070201, end: 20110101
  2. ASCORBIC ACID [Concomitant]
     Dosage: 1 DAILY
     Route: 048
     Dates: start: 20110810
  3. IRON [Concomitant]
     Dosage: 1 DAILY
     Route: 048
  4. FISH OIL [Concomitant]
     Dosage: 1 DAILY
     Route: 048
     Dates: start: 20110810
  5. GLUCOSAMINE CHONDROITIN [Concomitant]
     Dosage: UNK
     Route: 048
     Dates: start: 20110810
  6. SLOW NIACIN [Concomitant]
     Dosage: UNK
     Route: 048
     Dates: start: 20110810
  7. VICODIN [Concomitant]
     Indication: PAIN
     Dosage: 5 MG EVERY 6 HOURS AS NEEDED
     Route: 048
  8. YAZ [Suspect]
     Indication: CONTRACEPTION
     Dosage: UNK
     Dates: start: 20070201, end: 20110101
  9. DROSPIRENONE AND ETHINYL ESTRADIOL [Suspect]
     Indication: CONTRACEPTION
     Dosage: UNK
     Dates: start: 20070201, end: 20110101
  10. MULTI-VITAMIN [Concomitant]
     Dosage: 1 DAILY
     Route: 048
     Dates: start: 20110810
  11. MOTRIN [Concomitant]
     Dosage: 400 MG, 4 X DAY
     Route: 048

REACTIONS (12)
  - PULMONARY EMBOLISM [None]
  - EMOTIONAL DISTRESS [None]
  - ANXIETY [None]
  - FIBROMA [None]
  - BILE DUCT OBSTRUCTION [None]
  - GENERAL PHYSICAL HEALTH DETERIORATION [None]
  - CHOLECYSTITIS ACUTE [None]
  - PANCREATITIS [None]
  - ATELECTASIS [None]
  - PAIN [None]
  - CHOLELITHIASIS [None]
  - INJURY [None]
